FAERS Safety Report 19861341 (Version 5)
Quarter: 2022Q1

REPORT INFORMATION
  Report Type: Report from Study
  Country: US (occurrence: US)
  Receive Date: 20210920
  Receipt Date: 20220203
  Transmission Date: 20220423
  Serious: Yes (Disabling)
  Sender: FDA-Public Use
  Company Number: US-EXELIXIS-XL18421044159

PATIENT
  Age: 53 Year
  Sex: Male
  Weight: 69.3 kg

DRUGS (30)
  1. CABOZANTINIB [Suspect]
     Active Substance: CABOZANTINIB
     Indication: Renal cell carcinoma
     Dosage: 40 MG, QD
     Route: 048
     Dates: start: 20210114
  2. CABOZANTINIB [Suspect]
     Active Substance: CABOZANTINIB
     Dosage: 20 MG, QD
     Route: 048
     Dates: start: 20210604, end: 20210927
  3. IPILIMUMAB [Suspect]
     Active Substance: IPILIMUMAB
     Indication: Renal cell carcinoma
     Dosage: 1 MG/KG, Q3WEEKS, 4 DOSES
     Route: 042
     Dates: start: 20210114, end: 20210318
  4. NIVOLUMAB [Suspect]
     Active Substance: NIVOLUMAB
     Indication: Renal cell carcinoma
     Dosage: 3 MG/KG, Q3WEEKS, 4 DOSES
     Route: 042
     Dates: start: 20210114
  5. NIVOLUMAB [Suspect]
     Active Substance: NIVOLUMAB
     Dosage: 480 MG, Q4WEEKS, FLAT DOSE
     Route: 042
     Dates: end: 20210927
  6. ASPIRIN [Concomitant]
     Active Substance: ASPIRIN
  7. LIPITOR [Concomitant]
     Active Substance: ATORVASTATIN CALCIUM
  8. DULCOLAX NOS [Concomitant]
     Active Substance: BISACODYL OR DOCUSATE SODIUM
  9. BUTALBITAL, ACETAMINOPHEN, AND CAFFEINE [Concomitant]
     Active Substance: ACETAMINOPHEN\BUTALBITAL\CAFFEINE
  10. ASCORBIC ACID;COPPER;OMEGA-3 FATTY ACIDS;TOCOPHEROL;XANTOFYL;ZINC [Concomitant]
  11. UBIDECARENONE [Concomitant]
     Active Substance: UBIDECARENONE
  12. GEMFIBROZIL [Concomitant]
     Active Substance: GEMFIBROZIL
  13. NPH INSULIN [Concomitant]
     Active Substance: INSULIN BEEF
  14. LIDOCAINE [Concomitant]
     Active Substance: LIDOCAINE
  15. LISINOPRIL [Concomitant]
     Active Substance: LISINOPRIL
  16. METAXALONE [Concomitant]
     Active Substance: METAXALONE
  17. METFORMIN HYDROCHLORIDE [Concomitant]
     Active Substance: METFORMIN HYDROCHLORIDE
  18. DOCOSAHEXAENOIC ACID;EICOSAPENTAENOIC ACID;OMEGA-3 FATTY ACIDS [Concomitant]
  19. ONDANSETRON [Concomitant]
     Active Substance: ONDANSETRON
  20. OXYCODONE HYDROCHLORIDE [Concomitant]
     Active Substance: OXYCODONE HYDROCHLORIDE
  21. SILDENAFIL [Concomitant]
     Active Substance: SILDENAFIL
  22. CHANTIX [Concomitant]
     Active Substance: VARENICLINE TARTRATE
  23. VALIUM [Concomitant]
     Active Substance: DIAZEPAM
  24. MARINOL [Concomitant]
     Active Substance: DRONABINOL
  25. NEXIUM [Concomitant]
     Active Substance: ESOMEPRAZOLE MAGNESIUM
  26. ATIVAN [Concomitant]
     Active Substance: LORAZEPAM
  27. MAALOX ANTACID [Concomitant]
     Active Substance: ALUMINUM HYDROXIDE\DIMETHICONE\MAGNESIUM HYDROXIDE
  28. MORPHINE [Concomitant]
     Active Substance: MORPHINE
  29. REQUIP [Concomitant]
     Active Substance: ROPINIROLE HYDROCHLORIDE
  30. ADCIRCA [Concomitant]
     Active Substance: TADALAFIL

REACTIONS (1)
  - Posterior reversible encephalopathy syndrome [Recovered/Resolved]

NARRATIVE: CASE EVENT DATE: 20210909
